FAERS Safety Report 21502533 (Version 2)
Quarter: 2022Q4

REPORT INFORMATION
  Report Type: Spontaneous
  Country: US (occurrence: US)
  Receive Date: 20221025
  Receipt Date: 20221104
  Transmission Date: 20230113
  Serious: No
  Sender: FDA-Public Use
  Company Number: US-GLAXOSMITHKLINE-USCH2022039743

PATIENT
  Sex: Female

DRUGS (1)
  1. ADVIL [Suspect]
     Active Substance: IBUPROFEN
     Indication: Headache
     Dosage: UNK

REACTIONS (4)
  - Illness [Unknown]
  - Vomiting [Unknown]
  - Drug ineffective [Unknown]
  - Product complaint [Unknown]
